FAERS Safety Report 10163399 (Version 1)
Quarter: 2014Q2

REPORT INFORMATION
  Report Type: Spontaneous
  Country: US (occurrence: US)
  Receive Date: 20140509
  Receipt Date: 20140509
  Transmission Date: 20141212
  Serious: No
  Sender: FDA-Public Use
  Company Number: US-009507513-1405USA001214

PATIENT
  Sex: Female

DRUGS (1)
  1. OXYTROL FOR WOMEN [Suspect]
     Indication: PRODUCT USED FOR UNKNOWN INDICATION
     Dosage: UNK, Q4D
     Route: 062

REACTIONS (5)
  - Chemical injury [Unknown]
  - Skin tightness [Unknown]
  - Scab [Unknown]
  - Pruritus [Unknown]
  - Erythema [Unknown]
